FAERS Safety Report 13556423 (Version 1)
Quarter: 2017Q2

REPORT INFORMATION
  Report Type: Spontaneous
  Country: US (occurrence: US)
  Receive Date: 20170517
  Receipt Date: 20170517
  Transmission Date: 20170830
  Serious: No
  Sender: FDA-Public Use
  Company Number: US-SA-2017SA040190

PATIENT
  Age: 66 Year
  Sex: Male

DRUGS (5)
  1. SOLOSTAR [Concomitant]
     Active Substance: DEVICE
     Indication: TYPE 1 DIABETES MELLITUS
  2. TOUJEO [Suspect]
     Active Substance: INSULIN GLARGINE
     Indication: TYPE 1 DIABETES MELLITUS
     Dosage: 27-28U A, 6-8U?HS?FREQUENCY BID
     Route: 065
  3. HUMULIN NOS [Concomitant]
     Active Substance: INSULIN HUMAN
  4. APIDRA [Concomitant]
     Active Substance: INSULIN GLULISINE
     Dosage: 3/10
  5. LEVEMIR [Concomitant]
     Active Substance: INSULIN DETEMIR

REACTIONS (2)
  - Blood glucose abnormal [Unknown]
  - Product use issue [Unknown]
